FAERS Safety Report 18557227 (Version 1)
Quarter: 2020Q4

REPORT INFORMATION
  Report Type: Spontaneous
  Country: US (occurrence: US)
  Receive Date: 20201129
  Receipt Date: 20201129
  Transmission Date: 20210114
  Serious: No
  Sender: FDA-Public Use
  Company Number: US-ABBVIE-20K-163-3625395-00

PATIENT
  Sex: Female

DRUGS (6)
  1. ORIAHNN [Suspect]
     Active Substance: ELAGOLIX SODIUM\ESTRADIOL\NORETHINDRONE
     Dosage: MORNING DOSE
     Route: 048
     Dates: start: 2020
  2. ORIAHNN [Suspect]
     Active Substance: ELAGOLIX SODIUM\ESTRADIOL\NORETHINDRONE
     Indication: UTERINE LEIOMYOMA
     Dosage: EVENING DOSE
     Route: 048
     Dates: start: 202008, end: 2020
  3. ORIAHNN [Suspect]
     Active Substance: ELAGOLIX SODIUM\ESTRADIOL\NORETHINDRONE
     Dosage: EVENING DOSE
     Route: 048
     Dates: start: 2020, end: 2020
  4. ORIAHNN [Suspect]
     Active Substance: ELAGOLIX SODIUM\ESTRADIOL\NORETHINDRONE
     Dosage: EVENING CDOSE
     Route: 048
     Dates: start: 2020
  5. ORIAHNN [Suspect]
     Active Substance: ELAGOLIX SODIUM\ESTRADIOL\NORETHINDRONE
     Indication: UTERINE LEIOMYOMA
     Dosage: MORNING DOSE
     Route: 048
     Dates: start: 202008, end: 2020
  6. ORIAHNN [Suspect]
     Active Substance: ELAGOLIX SODIUM\ESTRADIOL\NORETHINDRONE
     Dosage: MORNING DOSE
     Route: 048
     Dates: start: 2020, end: 2020

REACTIONS (3)
  - Mood altered [Unknown]
  - Feeling abnormal [Unknown]
  - Abdominal distension [Unknown]
